FAERS Safety Report 4349095-4 (Version None)
Quarter: 2004Q2

REPORT INFORMATION
  Report Type: 
  Country: None (occurrence: None)
  Receive Date: 20040428
  Receipt Date: 20040329
  Transmission Date: 20050107
  Serious: Yes (Other)
  Sender: FDA-Public Use
  Company Number: PHEH2004US03563

PATIENT
  Age: 69 Year
  Sex: Male
  Weight: 83 kg

DRUGS (4)
  1. LOTREL [Suspect]
     Indication: HYPERTENSION
     Route: 048
     Dates: start: 20040127, end: 20040323
  2. LIPITOR [Concomitant]
     Dates: start: 20040301
  3. CELEXA [Concomitant]
  4. PLAVIX [Concomitant]
     Dates: start: 20040301

REACTIONS (6)
  - BLOOD PRESSURE DECREASED [None]
  - CATHETERISATION CARDIAC [None]
  - CORONARY ARTERY ATHEROSCLEROSIS [None]
  - DIZZINESS [None]
  - FLUSHING [None]
  - STENT PLACEMENT [None]
